FAERS Safety Report 14409928 (Version 1)
Quarter: 2018Q1

REPORT INFORMATION
  Report Type: Report from Study
  Country: FR (occurrence: FR)
  Receive Date: 20180119
  Receipt Date: 20180119
  Transmission Date: 20180509
  Serious: Yes (Death, Other)
  Sender: FDA-Public Use
  Company Number: FR-ROCHE-1944184

PATIENT

DRUGS (2)
  1. CYCLOSPORIN [Suspect]
     Active Substance: CYCLOSPORINE
     Indication: PROPHYLAXIS AGAINST TRANSPLANT REJECTION
     Route: 065
  2. MYCOPHENOLATE MOFETIL. [Suspect]
     Active Substance: MYCOPHENOLATE MOFETIL
     Indication: PROPHYLAXIS AGAINST TRANSPLANT REJECTION
     Route: 065

REACTIONS (10)
  - Diarrhoea [Unknown]
  - Infection [Fatal]
  - Anaemia [Unknown]
  - Leukopenia [Unknown]
  - Neoplasm malignant [Unknown]
  - Benign neoplasm [Unknown]
  - Bone marrow toxicity [Unknown]
  - Gastrointestinal disorder [Unknown]
  - Rash [Unknown]
  - Thrombocytopenia [Unknown]
